FAERS Safety Report 20655874 (Version 1)
Quarter: 2022Q1

REPORT INFORMATION
  Report Type: Spontaneous
  Country: GB (occurrence: GB)
  Receive Date: 20220330
  Receipt Date: 20220330
  Transmission Date: 20220424
  Serious: Yes (Hospitalization, Other)
  Sender: FDA-Public Use
  Company Number: GB-EMA-DD-20190311-kumarsingh_a-170148

PATIENT
  Age: 26 Year
  Sex: Female

DRUGS (16)
  1. ARIPIPRAZOLE [Suspect]
     Active Substance: ARIPIPRAZOLE
     Indication: Product used for unknown indication
     Dosage: THERAPY END DATE : ASKU, UNK
     Route: 065
     Dates: start: 201903
  2. TOPIRAMATE [Suspect]
     Active Substance: TOPIRAMATE
     Indication: Affective disorder
     Route: 048
     Dates: start: 201903
  3. TOPIRAMATE [Suspect]
     Active Substance: TOPIRAMATE
     Dosage: 100 MILLIGRAM DAILY; 25 MG, BID, THERAPY START DATE AND END DATE : ASKU
     Route: 048
  4. MIRTAZAPINE [Suspect]
     Active Substance: MIRTAZAPINE
     Indication: Depression
     Dosage: 45 MG,
     Route: 048
  5. MIRTAZAPINE [Suspect]
     Active Substance: MIRTAZAPINE
     Dosage: UNK
     Route: 048
     Dates: start: 201903
  6. VENLAFAXINE [Suspect]
     Active Substance: VENLAFAXINE HYDROCHLORIDE
     Indication: Product used for unknown indication
     Dates: start: 201903
  7. CLOZARIL [Suspect]
     Active Substance: CLOZAPINE
     Indication: Schizophrenia
     Dosage: 100 MILLIGRAM DAILY; 100 MG, AM
     Route: 048
     Dates: start: 20160606
  8. CLOZARIL [Suspect]
     Active Substance: CLOZAPINE
     Dosage: UNK
     Route: 048
     Dates: start: 20181128
  9. CLOZARIL [Suspect]
     Active Substance: CLOZAPINE
     Dosage: 200 MG, PM
     Route: 048
     Dates: start: 20160606
  10. CLOZARIL [Suspect]
     Active Substance: CLOZAPINE
     Dosage: 550 MILLIGRAM
     Route: 048
     Dates: start: 201903
  11. CLOZARIL [Suspect]
     Active Substance: CLOZAPINE
     Dosage: 300 MILLIGRAM DAILY; 300 MG, QD (100 MG AM AND 200 MG PM)
     Route: 048
     Dates: start: 20160606
  12. TOPIRAMATE [Suspect]
     Active Substance: TOPIRAMATE
     Indication: Affective disorder
     Dosage: 50 MILLIGRAM DAILY; 50 MG, QD, THERAPY START DATE AND END DATE : ASKU, FREQUENCY TIME : 1 DAYS, ADDI
     Route: 048
  13. TOPIRAMATE [Suspect]
     Active Substance: TOPIRAMATE
     Dosage: UNK, THERAPY END DATE : ASKU
     Route: 048
     Dates: start: 201903
  14. TOPIRAMATE [Suspect]
     Active Substance: TOPIRAMATE
     Dosage: 25 MILLIGRAM DAILY; 25 MG, BID, THERAPY START DATE AND END DATE : ASKU
     Route: 048
  15. TOPIRAMATE [Suspect]
     Active Substance: TOPIRAMATE
     Dosage: UNK, THERAPY START DATE AND END DATE : ASKU
     Route: 048
  16. PREGABALIN [Concomitant]
     Active Substance: PREGABALIN
     Indication: Anxiolytic therapy
     Dosage: 75 MG, UNK
     Route: 048

REACTIONS (4)
  - Pyrexia [Recovered/Resolved]
  - Overdose [Unknown]
  - Infection [Unknown]
  - Off label use [Unknown]

NARRATIVE: CASE EVENT DATE: 20161110
